FAERS Safety Report 23492921 (Version 2)
Quarter: 2024Q2

REPORT INFORMATION
  Report Type: Spontaneous
  Country: US (occurrence: US)
  Receive Date: 20240207
  Receipt Date: 20240628
  Transmission Date: 20240716
  Serious: No
  Sender: FDA-Public Use
  Company Number: US-BRISTOL-MYERS SQUIBB COMPANY-2024-019074

PATIENT
  Age: 62 Year
  Sex: Female

DRUGS (2)
  1. REVLIMID [Suspect]
     Active Substance: LENALIDOMIDE
     Indication: Plasma cell myeloma
     Route: 048
     Dates: start: 202401, end: 202405
  2. REVLIMID [Suspect]
     Active Substance: LENALIDOMIDE
     Dosage: FREQ: EVERY OTHER DAY FOR 21 DAYS ON AND 7 DAYS OFF FOR A 28 DAY CYCLE
     Route: 048

REACTIONS (5)
  - Feeling jittery [Not Recovered/Not Resolved]
  - Off label use [Unknown]
  - Diarrhoea [Unknown]
  - Brain fog [Unknown]
  - Nausea [Unknown]

NARRATIVE: CASE EVENT DATE: 20230101
